FAERS Safety Report 21982093 (Version 1)
Quarter: 2023Q1

REPORT INFORMATION
  Report Type: Spontaneous
  Country: FR (occurrence: FR)
  Receive Date: 20230213
  Receipt Date: 20230213
  Transmission Date: 20230417
  Serious: Yes (Death, Other)
  Sender: FDA-Public Use
  Company Number: FR-AFSSAPS-PO2023000130

PATIENT
  Sex: Male

DRUGS (1)
  1. IMATINIB [Suspect]
     Active Substance: IMATINIB
     Indication: Dermatofibrosarcoma protuberans
     Dosage: 400 MILLIGRAM, ONCE A DAY
     Route: 065
     Dates: start: 20200216, end: 20200528

REACTIONS (2)
  - Foetal death [Fatal]
  - Cleft lip and palate [Not Recovered/Not Resolved]

NARRATIVE: CASE EVENT DATE: 20200528
